FAERS Safety Report 17702456 (Version 1)
Quarter: 2020Q2

REPORT INFORMATION
  Report Type: Spontaneous
  Country: US (occurrence: US)
  Receive Date: 20200424
  Receipt Date: 20200424
  Transmission Date: 20200714
  Serious: Yes (Other)
  Sender: FDA-Public Use
  Company Number: US-CELLTRION INC.-2020US021783

PATIENT

DRUGS (2)
  1. RITUXIMAB (UNKNOWN) [Suspect]
     Active Substance: RITUXIMAB
     Indication: EXTRANODAL MARGINAL ZONE B-CELL LYMPHOMA (MALT TYPE)
     Dosage: WEEKLY RITUXIMAB MONOTHERAPY FOR 8 WEEKS
  2. RITUXIMAB (UNKNOWN) [Suspect]
     Active Substance: RITUXIMAB
     Dosage: MAINTENANCE RITUXIMAB EVERY 2 MONTHS FOR 2 YEARS

REACTIONS (3)
  - Hodgkin^s disease [Unknown]
  - Drug effective for unapproved indication [Unknown]
  - Off label use [Unknown]
